FAERS Safety Report 4459852-1 (Version None)
Quarter: 2004Q3

REPORT INFORMATION
  Report Type: 
  Country: None (occurrence: None)
  Receive Date: 20040928
  Receipt Date: 20040726
  Transmission Date: 20050211
  Serious: No
  Sender: FDA-Public Use
  Company Number: US-BRISTOL-MYERS SQUIBB COMPANY-12652095

PATIENT
  Age: 6 Month
  Sex: Male

DRUGS (1)
  1. TRIMOX [Suspect]
     Indication: SIMPLE PARTIAL SEIZURES
     Dosage: 250 MG/5 ML
     Route: 048
     Dates: start: 20040719

REACTIONS (1)
  - ADVERSE EVENT [None]
